FAERS Safety Report 15095721 (Version 1)
Quarter: 2018Q2

REPORT INFORMATION
  Report Type: Spontaneous
  Country: US (occurrence: US)
  Receive Date: 20180609
  Receipt Date: 20180609
  Transmission Date: 20180711
  Serious: Yes (Other)
  Sender: FDA-Public Use
  Company Number: None

PATIENT
  Age: 29 Year
  Sex: Male
  Weight: 90 kg

DRUGS (2)
  1. SUBOXONE [Suspect]
     Active Substance: BUPRENORPHINE HYDROCHLORIDE\NALOXONE HYDROCHLORIDE
     Indication: PAIN
     Dosage: ?          QUANTITY:1 1\2 STRIP SUBOXIN;?
     Route: 060
  2. EXCEDRIN EXTRA STRENGTH [Concomitant]
     Active Substance: ACETAMINOPHEN\ASPIRIN\CAFFEINE

REACTIONS (11)
  - Dyspnoea [None]
  - Incorrect dose administered [None]
  - Fatigue [None]
  - Back pain [None]
  - Headache [None]
  - Hyperhidrosis [None]
  - Feeling abnormal [None]
  - Vision blurred [None]
  - Nausea [None]
  - Abdominal pain upper [None]
  - Self-medication [None]

NARRATIVE: CASE EVENT DATE: 20180608
